FAERS Safety Report 17479949 (Version 2)
Quarter: 2020Q1

REPORT INFORMATION
  Report Type: Spontaneous
  Country: US (occurrence: US)
  Receive Date: 20200228
  Receipt Date: 20200325
  Transmission Date: 20200409
  Serious: No
  Sender: FDA-Public Use
  Company Number: US-VERTEX PHARMACEUTICALS-2020-001400

PATIENT
  Age: 67 Year
  Sex: Male

DRUGS (20)
  1. PULMOZYME [Concomitant]
     Active Substance: DORNASE ALFA
  2. PEPCID [Concomitant]
     Active Substance: FAMOTIDINE
     Indication: GASTROINTESTINAL DISORDER
  3. LIPITOR [Concomitant]
     Active Substance: ATORVASTATIN CALCIUM
     Indication: BLOOD CHOLESTEROL INCREASED
  4. LINEZOLID. [Concomitant]
     Active Substance: LINEZOLID
  5. HUMALOG [Concomitant]
     Active Substance: INSULIN LISPRO
  6. POTASSIUM CITRATE. [Concomitant]
     Active Substance: POTASSIUM CITRATE
  7. WARFARIN [Concomitant]
     Active Substance: WARFARIN
  8. ZYVOX [Concomitant]
     Active Substance: LINEZOLID
  9. ATORVASTATIN [Concomitant]
     Active Substance: ATORVASTATIN
  10. CARVEDILOL. [Concomitant]
     Active Substance: CARVEDILOL
  11. METFORMIN [Concomitant]
     Active Substance: METFORMIN HYDROCHLORIDE
  12. MAGNESIUM [Concomitant]
     Active Substance: MAGNESIUM
     Dosage: 400 MG, QD
     Route: 048
  13. XIGDUO XR [Concomitant]
     Active Substance: DAPAGLIFLOZIN PROPANEDIOL\METFORMIN HYDROCHLORIDE
  14. LISINOPRIL. [Concomitant]
     Active Substance: LISINOPRIL
  15. LEVAQUIN [Concomitant]
     Active Substance: LEVOFLOXACIN
  16. FLAGYL [Concomitant]
     Active Substance: METRONIDAZOLE\METRONIDAZOLE HYDROCHLORIDE
  17. ALENDRONATE [Concomitant]
     Active Substance: ALENDRONATE SODIUM
  18. TRIKAFTA [Suspect]
     Active Substance: ELEXACAFTOR\IVACAFTOR\TEZACAFTOR
     Indication: CYSTIC FIBROSIS
     Dosage: 2 TABS (100MG ELEXACAFTOR/50MG TEZACAFTOR/75MG IVACAFTOR) AM; 1 TAB(150MG IVACAFTOR) PM
     Route: 048
     Dates: start: 20191227
  19. DIGOXIN. [Concomitant]
     Active Substance: DIGOXIN
  20. TOUJEO [Concomitant]
     Active Substance: INSULIN GLARGINE

REACTIONS (11)
  - Urine oxalate increased [Unknown]
  - Hypoacusis [Unknown]
  - Larynx irritation [Unknown]
  - Urine sodium increased [Unknown]
  - Renal cyst [Unknown]
  - Nephrolithiasis [Unknown]
  - Urine uric acid increased [Unknown]
  - Chromaturia [Unknown]
  - Blood magnesium increased [Unknown]
  - Dysphonia [Unknown]
  - Blood potassium increased [Unknown]

NARRATIVE: CASE EVENT DATE: 202001
